FAERS Safety Report 14814018 (Version 1)
Quarter: 2018Q2

REPORT INFORMATION
  Report Type: Spontaneous
  Country: FR (occurrence: FR)
  Receive Date: 20180426
  Receipt Date: 20180426
  Transmission Date: 20180711
  Serious: Yes (Other)
  Sender: FDA-Public Use
  Company Number: FR-MERCK KGAA-2046593

PATIENT
  Age: 62 Year
  Sex: Female

DRUGS (2)
  1. NOVOTHYROX [Suspect]
     Active Substance: LEVOTHYROXINE SODIUM
     Indication: POST PROCEDURAL HYPOTHYROIDISM
     Dates: start: 201703, end: 201710
  2. LEVOTHYROX NF [Suspect]
     Active Substance: LEVOTHYROXINE SODIUM
     Dates: start: 201711

REACTIONS (22)
  - Stress [None]
  - Fear [None]
  - Mood altered [None]
  - Irritability [None]
  - Hypokinesia [None]
  - Arthralgia [Not Recovered/Not Resolved]
  - Pain in extremity [None]
  - Condition aggravated [None]
  - Loss of personal independence in daily activities [None]
  - Anxiety [None]
  - Libido decreased [None]
  - Fatigue [None]
  - Decreased activity [None]
  - Pain [None]
  - Gait disturbance [None]
  - Muscle spasms [Recovering/Resolving]
  - Musculoskeletal stiffness [Recovering/Resolving]
  - Headache [None]
  - Mobility decreased [Recovering/Resolving]
  - Asthenia [Recovering/Resolving]
  - Apathy [None]
  - Myalgia [Not Recovered/Not Resolved]

NARRATIVE: CASE EVENT DATE: 201704
